FAERS Safety Report 21216325 (Version 2)
Quarter: 2022Q3

REPORT INFORMATION
  Report Type: Report from Study
  Country: US (occurrence: US)
  Receive Date: 20220816
  Receipt Date: 20220823
  Transmission Date: 20221026
  Serious: No
  Sender: FDA-Public Use
  Company Number: US-NOVARTISTESTPH-NVSC2022US184413

PATIENT
  Sex: Male

DRUGS (1)
  1. ENTRESTO [Suspect]
     Active Substance: SACUBITRIL\VALSARTAN
     Indication: Cardiomyopathy
     Dosage: 24 MG, BID (24-26 MG)
     Route: 048

REACTIONS (4)
  - Vision blurred [Unknown]
  - Malaise [Unknown]
  - Dizziness [Unknown]
  - Product use in unapproved indication [Unknown]
